FAERS Safety Report 9119299 (Version 2)
Quarter: 2013Q1

REPORT INFORMATION
  Report Type: Spontaneous
  Country: BR (occurrence: BR)
  Receive Date: 20130226
  Receipt Date: 20130329
  Transmission Date: 20140127
  Serious: Yes (Other)
  Sender: FDA-Public Use
  Company Number: PHHY2013BR017981

PATIENT
  Age: 18 Year
  Sex: Female

DRUGS (8)
  1. TEGRETOL [Suspect]
     Indication: MICROCEPHALY
     Dosage: 2 ML, UNK
     Route: 048
  2. TEGRETOL [Suspect]
     Indication: CONVULSION
     Dosage: 8 ML, UNK
     Route: 048
  3. TEGRETOL [Suspect]
     Indication: CEREBRAL PALSY
     Dosage: 8 ML, TID, SINCE SHE WAS 1 YEAR OLD
     Route: 048
  4. CARBAMAZEPINE [Suspect]
     Indication: CONVULSION
     Dosage: UNK UKN, UNK
     Dates: start: 201210
  5. CARBAMAZEPINE [Suspect]
     Indication: MICROCEPHALY
  6. CARBAMAZEPINE [Suspect]
     Indication: CEREBRAL PALSY
  7. CARBAMAZEPINE [Suspect]
     Dosage: 10 ML, TID
  8. BACLOFEN [Concomitant]
     Indication: HYPOTONIA
     Dosage: 20 MG, DAILY
     Route: 048

REACTIONS (4)
  - Epilepsy [Recovered/Resolved]
  - Apnoeic attack [Recovered/Resolved]
  - Febrile convulsion [Recovered/Resolved]
  - Ophthalmoplegia [Recovered/Resolved]
